FAERS Safety Report 9463886 (Version 2)
Quarter: 2013Q3

REPORT INFORMATION
  Report Type: Spontaneous
  Country: US (occurrence: US)
  Receive Date: 20130819
  Receipt Date: 20130917
  Transmission Date: 20140515
  Serious: Yes (Other)
  Sender: FDA-Public Use
  Company Number: US-TEVA-425558USA

PATIENT
  Age: 33 Year
  Sex: Female

DRUGS (1)
  1. PARAGARD 380A [Suspect]
     Indication: CONTRACEPTION
     Route: 015
     Dates: start: 20080925, end: 20130806

REACTIONS (3)
  - Device dislocation [Unknown]
  - Medical device complication [Recovering/Resolving]
  - Device breakage [Recovering/Resolving]
